FAERS Safety Report 21079319 (Version 1)
Quarter: 2022Q3

REPORT INFORMATION
  Report Type: Spontaneous
  Country: ES (occurrence: ES)
  Receive Date: 20220714
  Receipt Date: 20220714
  Transmission Date: 20221027
  Serious: Yes (Life-Threatening, Hospitalization, Other)
  Sender: FDA-Public Use
  Company Number: None

PATIENT
  Age: 65 Year
  Sex: Female

DRUGS (5)
  1. BEVACIZUMAB [Suspect]
     Active Substance: BEVACIZUMAB
     Indication: Ovarian cancer
     Dosage: 15 MILLIGRAM/KILOGRAM, CYCLICAL
     Route: 042
     Dates: start: 20190109, end: 20200629
  2. LYNPARZA [Suspect]
     Active Substance: OLAPARIB
     Indication: Ovarian cancer
     Dosage: 250 MILLIGRAM
     Route: 048
     Dates: start: 20200216, end: 20210818
  3. LYNPARZA [Suspect]
     Active Substance: OLAPARIB
     Dosage: 300 MG CADA 12 HORAS
     Route: 065
     Dates: start: 20190802, end: 20200215
  4. CARBOPLATIN [Suspect]
     Active Substance: CARBOPLATIN
     Indication: Ovarian cancer
     Dosage: AUC 5, 8 CICLOS
     Route: 042
     Dates: start: 20190109, end: 20190705
  5. PACLITAXEL [Suspect]
     Active Substance: PACLITAXEL
     Indication: Ovarian cancer
     Dosage: 8 CICLOS
     Route: 042
     Dates: start: 20190109, end: 20190705

REACTIONS (2)
  - Myelodysplastic syndrome [Not Recovered/Not Resolved]
  - Transformation to acute myeloid leukaemia [Not Recovered/Not Resolved]

NARRATIVE: CASE EVENT DATE: 20210817
